FAERS Safety Report 9879855 (Version 3)
Quarter: 2014Q4

REPORT INFORMATION
  Report Type: Spontaneous
  Country: US (occurrence: US)
  Receive Date: 20140206
  Receipt Date: 20141003
  Transmission Date: 20150529
  Serious: Yes (Hospitalization)
  Sender: FDA-Public Use
  Company Number: US-009507513-1402USA002043

PATIENT
  Sex: Female

DRUGS (1)
  1. NUVARING [Suspect]
     Active Substance: ETHINYL ESTRADIOL\ETONOGESTREL
     Indication: PRODUCT USED FOR UNKNOWN INDICATION
     Route: 067

REACTIONS (11)
  - Asthma [Unknown]
  - Deep vein thrombosis [Unknown]
  - Rhinitis allergic [Unknown]
  - Pneumonia [Unknown]
  - Cellulitis [Unknown]
  - Herpes simplex [Unknown]
  - Osteoarthritis [Unknown]
  - Weight decreased [Unknown]
  - Patellofemoral pain syndrome [Unknown]
  - Skin operation [Unknown]
  - Muscle strain [Unknown]

NARRATIVE: CASE EVENT DATE: 2012
